FAERS Safety Report 6523080-6 (Version None)
Quarter: 2009Q4

REPORT INFORMATION
  Report Type: 
  Country: None (occurrence: None)
  Receive Date: 20091222
  Receipt Date: 20091207
  Transmission Date: 20100525
  Serious: Yes (Other)
  Sender: FDA-Public Use
  Company Number: TRP_06645_2009

PATIENT
  Sex: Male
  Weight: 74.8435 kg

DRUGS (11)
  1. INFERGEN [Suspect]
     Indication: HEPATITIS C
     Dosage: (15 ?G QD 3X/WEEK SUBCUTANEOUS)
     Route: 058
     Dates: start: 20091105, end: 20090101
  2. RIBAVIRIN [Suspect]
     Indication: HEPATITIS C
     Dosage: 1200 MG, DAILY ORAL, (1000 MG [600 MG EACH MORNING AND 400 MG EACH EVENING] ORAL)
     Route: 048
     Dates: start: 20091105, end: 20090101
  3. HYDROXYCHLOROQUINE SULFATE [Concomitant]
  4. PREDNISONE [Concomitant]
  5. SYNTHROID [Concomitant]
  6. OMEPRAZOLE [Concomitant]
  7. OXYCONTIN [Concomitant]
  8. REMERON [Concomitant]
  9. WELLBUTRIN [Concomitant]
  10. VIT D [Concomitant]
  11. SELENIUM [Concomitant]

REACTIONS (10)
  - DECREASED APPETITE [None]
  - DYSPHONIA [None]
  - NAUSEA [None]
  - PARANASAL SINUS HYPERSECRETION [None]
  - RETINAL EXUDATES [None]
  - SINUSITIS NONINFECTIVE [None]
  - TENDONITIS [None]
  - VISUAL ACUITY REDUCED [None]
  - VISUAL FIELD DEFECT [None]
  - WEIGHT DECREASED [None]
